FAERS Safety Report 5007550-8 (Version None)
Quarter: 2006Q2

REPORT INFORMATION
  Report Type: 
  Country: None (occurrence: None)
  Receive Date: 20060517
  Receipt Date: 20060428
  Transmission Date: 20061013
  Serious: Yes (Death, Hospitalization)
  Sender: FDA-Public Use
  Company Number: 2006058510

PATIENT
  Age: 31 Year
  Sex: Male
  Weight: 86.1834 kg

DRUGS (2)
  1. CELEBREX [Suspect]
     Indication: ARTHRITIS
     Dosage: 400 MG (200 MG, 2 IN 1 D)
     Dates: start: 20030507
  2. CELEBREX [Suspect]
     Indication: NEOPLASM MALIGNANT
     Dosage: 400 MG (200 MG, 2 IN 1 D)
     Dates: start: 20030507

REACTIONS (2)
  - NEOPLASM MALIGNANT [None]
  - PULMONARY EMBOLISM [None]
